FAERS Safety Report 19260231 (Version 1)
Quarter: 2021Q2

REPORT INFORMATION
  Report Type: Report from Study
  Country: US (occurrence: US)
  Receive Date: 20210514
  Receipt Date: 20210514
  Transmission Date: 20210717
  Serious: Yes (Hospitalization)
  Sender: FDA-Public Use
  Company Number: US-TEVA-2021-US-1911322

PATIENT
  Age: 74 Year
  Sex: Male
  Weight: 117.93 kg

DRUGS (3)
  1. 5?FLUOROURACIL [Suspect]
     Active Substance: FLUOROURACIL
     Indication: ADENOCARCINOMA PANCREAS
     Dosage: LAST ADMINISTERED:  28?JAN?2021
     Route: 065
  2. LIPOSOMAL IRINORECAN [Suspect]
     Active Substance: IRINOTECAN
     Indication: ADENOCARCINOMA PANCREAS
     Dosage: LAST ADMINISTERED:  26?JAN?2021
     Route: 065
  3. LEUCOVORIN TEVA [Suspect]
     Active Substance: LEUCOVORIN
     Indication: ADENOCARCINOMA PANCREAS
     Dosage: LAST ADMINISTERED: 26?JAN?2021/400 MG/M2
     Route: 042
     Dates: start: 20210112

REACTIONS (2)
  - Blood creatinine increased [Recovered/Resolved]
  - Diarrhoea [Not Recovered/Not Resolved]

NARRATIVE: CASE EVENT DATE: 20210112
